FAERS Safety Report 4955504-X (Version None)
Quarter: 2006Q1

REPORT INFORMATION
  Report Type: 
  Country: None (occurrence: None)
  Receive Date: 20060328
  Receipt Date: 20060303
  Transmission Date: 20060701
  Serious: Yes (Disabling)
  Sender: FDA-Public Use
  Company Number: FI-AVENTIS-200612115GDDC

PATIENT
  Age: 59 Year
  Sex: Male

DRUGS (2)
  1. TAXOTERE [Suspect]
     Indication: PROSTATE CANCER
     Route: 042
  2. NEORECORMON ^BOEHRINGER MANNHEIM^ [Suspect]
     Dosage: DOSE: UNK

REACTIONS (1)
  - TENDON RUPTURE [None]
